FAERS Safety Report 14151881 (Version 2)
Quarter: 2017Q4

REPORT INFORMATION
  Report Type: Report from Study
  Country: None (occurrence: US)
  Receive Date: 20171102
  Receipt Date: 20171120
  Transmission Date: 20180321
  Serious: Yes (Hospitalization, Disabling, Other)
  Sender: FDA-Public Use
  Company Number: US-ABBVIE-17K-163-2144724-00

PATIENT
  Sex: Female

DRUGS (1)
  1. HUMIRA [Suspect]
     Active Substance: ADALIMUMAB
     Indication: HIDRADENITIS
     Route: 058

REACTIONS (22)
  - Hospitalisation [Recovered/Resolved]
  - Mobility decreased [Not Recovered/Not Resolved]
  - Peripheral swelling [Not Recovered/Not Resolved]
  - Choking [Unknown]
  - Visual impairment [Not Recovered/Not Resolved]
  - Deafness unilateral [Not Recovered/Not Resolved]
  - Enuresis [Not Recovered/Not Resolved]
  - Scar [Not Recovered/Not Resolved]
  - Tooth fracture [Not Recovered/Not Resolved]
  - Pharyngeal ulceration [Unknown]
  - Weight increased [Unknown]
  - Gingival recession [Not Recovered/Not Resolved]
  - Perforated ulcer [Unknown]
  - Skin haemorrhage [Unknown]
  - Haemorrhage [Unknown]
  - Skin ulcer [Not Recovered/Not Resolved]
  - Depression [Unknown]
  - Alopecia [Not Recovered/Not Resolved]
  - Bedridden [Not Recovered/Not Resolved]
  - Concussion [Unknown]
  - Renal failure [Unknown]
  - Anxiety [Unknown]

NARRATIVE: CASE EVENT DATE: 2011
